FAERS Safety Report 25036053 (Version 2)
Quarter: 2025Q2

REPORT INFORMATION
  Report Type: Spontaneous
  Country: US (occurrence: US)
  Receive Date: 20250304
  Receipt Date: 20250517
  Transmission Date: 20250717
  Serious: Yes (Hospitalization, Other)
  Sender: ACCORD
  Company Number: US-Accord-471445

PATIENT
  Age: 64 Year
  Sex: Male
  Weight: 87 kg

DRUGS (20)
  1. CARBOPLATIN [Suspect]
     Active Substance: CARBOPLATIN
     Indication: Biphasic mesothelioma
     Route: 042
     Dates: start: 20221031, end: 20221031
  2. PEMETREXED [Suspect]
     Active Substance: PEMETREXED
     Indication: Biphasic mesothelioma
     Route: 042
     Dates: start: 20221031, end: 20221031
  3. AMLODIPINE [Concomitant]
     Active Substance: AMLODIPINE BESYLATE
     Dates: start: 20160429, end: 20230130
  4. DULOXETINE [Concomitant]
     Active Substance: DULOXETINE
     Dates: start: 20171116
  5. OLANZAPINE [Concomitant]
     Active Substance: OLANZAPINE
     Dates: start: 20220805
  6. GABAPENTIN [Concomitant]
     Active Substance: GABAPENTIN
     Dates: start: 20220805
  7. DICLOFENAC [Concomitant]
     Active Substance: DICLOFENAC
     Dates: start: 20220808
  8. LIDOCAINE [Concomitant]
     Active Substance: LIDOCAINE
     Dates: start: 20220809, end: 20230306
  9. FOLIC ACID [Concomitant]
     Active Substance: FOLIC ACID
     Dates: start: 20221007
  10. ONDANSETRON [Concomitant]
     Active Substance: ONDANSETRON
     Dates: start: 20230312
  11. POLYETHYLENE GLYCOL [Concomitant]
     Active Substance: POLYETHYLENE GLYCOL
     Dates: start: 20220617
  12. VITAMINS [Concomitant]
     Active Substance: VITAMINS
     Dates: start: 20131122
  13. ZYRTEC [Concomitant]
     Active Substance: CETIRIZINE HYDROCHLORIDE
     Dates: start: 202206
  14. ESCITALOPRAM OXALATE [Concomitant]
     Active Substance: ESCITALOPRAM OXALATE
     Dates: start: 20221102
  15. MOMETASONE FUROATE [Concomitant]
     Active Substance: MOMETASONE FUROATE
     Dates: start: 202206
  16. BACLOFEN [Concomitant]
     Active Substance: BACLOFEN
     Dates: start: 20221107, end: 20221125
  17. ALLOPURINOL [Concomitant]
     Active Substance: ALLOPURINOL
     Dates: start: 20221123
  18. DEXAMETHASONE [Concomitant]
     Active Substance: DEXAMETHASONE
     Dates: start: 20221221, end: 20221222
  19. CARBOPLATIN [Suspect]
     Active Substance: CARBOPLATIN
     Indication: Biphasic mesothelioma
     Route: 042
     Dates: start: 20221212, end: 20221212
  20. PEMETREXED [Suspect]
     Active Substance: PEMETREXED
     Indication: Biphasic mesothelioma
     Route: 042
     Dates: start: 20221212, end: 20221212

REACTIONS (1)
  - Acute kidney injury [Recovered/Resolved with Sequelae]

NARRATIVE: CASE EVENT DATE: 20221222
